FAERS Safety Report 8837198 (Version 1)
Quarter: 2012Q4

REPORT INFORMATION
  Report Type: 
  Country: US (occurrence: US)
  Receive Date: 20121011
  Receipt Date: 20121011
  Transmission Date: 20130627
  Serious: Yes (Other)
  Sender: FDA-Public Use
  Company Number: US-ROCHE-1132728

PATIENT
  Sex: Male
  Weight: 58.9 kg

DRUGS (4)
  1. NUTROPIN [Suspect]
     Indication: BODY HEIGHT BELOW NORMAL
     Dosage: 0.38 cc
     Route: 058
  2. NUTROPIN [Suspect]
     Dosage: 0.46 cc
     Route: 058
  3. DEPAKOTE [Concomitant]
     Dosage: morning 325 mg and evening 625 mg
     Route: 065
  4. CYCLOSPORIN [Concomitant]

REACTIONS (3)
  - Convulsion [Unknown]
  - Headache [Unknown]
  - Back pain [Unknown]
